FAERS Safety Report 5037081-0 (Version None)
Quarter: 2006Q2

REPORT INFORMATION
  Report Type: 
  Country: None (occurrence: None)
  Receive Date: 20060616
  Receipt Date: 20060324
  Transmission Date: 20061013
  Serious: No
  Sender: FDA-Public Use
  Company Number: 2006RL000114

PATIENT
  Sex: Female

DRUGS (2)
  1. OMACOR [Suspect]
     Indication: PROPHYLAXIS
     Dosage: 4 GM; QD; PO
     Route: 048
     Dates: start: 20060101, end: 20060301
  2. MULTIVITAMIN [Concomitant]

REACTIONS (1)
  - PLATELET COUNT DECREASED [None]
